FAERS Safety Report 8052436-8 (Version None)
Quarter: 2012Q1

REPORT INFORMATION
  Report Type: 
  Country: None (occurrence: None)
  Receive Date: 20120118
  Receipt Date: 20120116
  Transmission Date: 20120608
  Serious: Yes (Other)
  Sender: FDA-Public Use
  Company Number: US-PFIZER INC-2012012948

PATIENT
  Sex: Female
  Weight: 58.503 kg

DRUGS (4)
  1. CHANTIX [Suspect]
     Indication: SMOKING CESSATION THERAPY
     Dosage: 0.5 MG, 1X/DAY
     Route: 048
     Dates: start: 20111123, end: 20110101
  2. CHANTIX [Suspect]
     Dosage: UNK
     Route: 048
     Dates: start: 20110101, end: 20111201
  3. BENICAR HCT [Concomitant]
     Indication: HYPERTENSION
     Dosage: 40/12.5 MG, 1X/DAY
  4. DILTIAZEM [Concomitant]
     Indication: HYPERTENSION
     Dosage: 260 MG, 1X/DAY

REACTIONS (4)
  - SURGERY [None]
  - DEPRESSED MOOD [None]
  - FEELING OF RELAXATION [None]
  - THERAPEUTIC RESPONSE UNEXPECTED [None]
